FAERS Safety Report 22075337 (Version 1)
Quarter: 2023Q1

REPORT INFORMATION
  Report Type: Spontaneous
  Country: FR (occurrence: FR)
  Receive Date: 20230308
  Receipt Date: 20230308
  Transmission Date: 20230418
  Serious: Yes (Death)
  Sender: FDA-Public Use
  Company Number: None

PATIENT
  Age: 1 Hour
  Sex: Male
  Weight: 2.28 kg

DRUGS (1)
  1. AMOXICILLIN [Suspect]
     Active Substance: AMOXICILLIN
     Indication: Antibiotic prophylaxis
     Route: 065
     Dates: start: 20220501, end: 20220501

REACTIONS (3)
  - Hypoxic-ischaemic encephalopathy [Fatal]
  - Foetal distress syndrome [Fatal]
  - Bradycardia foetal [Fatal]

NARRATIVE: CASE EVENT DATE: 20220501
